FAERS Safety Report 9438426 (Version 1)
Quarter: 2013Q3

REPORT INFORMATION
  Report Type: Spontaneous
  Country: US (occurrence: US)
  Receive Date: 20130802
  Receipt Date: 20130802
  Transmission Date: 20140515
  Serious: No
  Sender: FDA-Public Use
  Company Number: US-PFIZER INC-2013222357

PATIENT
  Age: 15 Year
  Sex: Female

DRUGS (1)
  1. AZITHROMYCIN [Suspect]
     Dosage: UNK

REACTIONS (4)
  - Abdominal pain upper [Unknown]
  - Throat irritation [Unknown]
  - Product odour abnormal [Unknown]
  - Product taste abnormal [Unknown]
